FAERS Safety Report 25079788 (Version 1)
Quarter: 2025Q1

REPORT INFORMATION
  Report Type: Spontaneous
  Country: JP (occurrence: JP)
  Receive Date: 20250314
  Receipt Date: 20250314
  Transmission Date: 20250409
  Serious: Yes (Hospitalization, Other)
  Sender: ADMA BIOLOGICS
  Company Number: JP-ADMA BIOLOGICS INC.-JP-2025ADM000122

PATIENT
  Age: 83 Year
  Sex: Male

DRUGS (1)
  1. HUMAN IMMUNOGLOBULIN G [Suspect]
     Active Substance: HUMAN IMMUNOGLOBULIN G
     Indication: Toxic epidermal necrolysis
     Dosage: 400 MG/KG, QD FOR 5 DAYS
     Route: 042

REACTIONS (3)
  - Toxic epidermal necrolysis [Recovering/Resolving]
  - Thrombocytopenia [Recovering/Resolving]
  - Off label use [Recovered/Resolved]
